FAERS Safety Report 15201345 (Version 1)
Quarter: 2018Q3

REPORT INFORMATION
  Report Type: Other
  Country: FR (occurrence: FR)
  Receive Date: 20180726
  Receipt Date: 20180726
  Transmission Date: 20181010
  Serious: Yes (Death, Other)
  Sender: FDA-Public Use
  Company Number: FR-MERCK KGAA-2052760

PATIENT
  Sex: Male

DRUGS (2)
  1. NOVOTHYROX [Suspect]
     Active Substance: LEVOTHYROXINE SODIUM
     Indication: PRODUCT USED FOR UNKNOWN INDICATION
  2. CARBIMAZOLE [Suspect]
     Active Substance: CARBIMAZOLE

REACTIONS (7)
  - Premature delivery [Recovered/Resolved]
  - Gastroschisis [Fatal]
  - Foetal exposure during pregnancy [Recovered/Resolved]
  - Disseminated intravascular coagulation [Fatal]
  - Hyperkalaemia [Fatal]
  - Anaemia [Fatal]
  - Metabolic acidosis [Fatal]
